FAERS Safety Report 20196922 (Version 2)
Quarter: 2022Q1

REPORT INFORMATION
  Report Type: Spontaneous
  Country: US (occurrence: US)
  Receive Date: 20211217
  Receipt Date: 20220118
  Transmission Date: 20220423
  Serious: Yes (Hospitalization, Other)
  Sender: FDA-Public Use
  Company Number: US-ORGANON-O2112USA001556

PATIENT
  Age: 26 Year
  Sex: Female
  Weight: 71.655 kg

DRUGS (1)
  1. NEXPLANON [Suspect]
     Active Substance: ETONOGESTREL
     Indication: Contraception
     Dosage: 1 ROD OF 68 MG, LEFT ARM
     Route: 058
     Dates: start: 20210804, end: 20211213

REACTIONS (5)
  - Abortion spontaneous [Recovered/Resolved]
  - Blood loss anaemia [Unknown]
  - Hypokalaemia [Unknown]
  - Tachycardia [Unknown]
  - Maternal exposure during pregnancy [Recovered/Resolved]

NARRATIVE: CASE EVENT DATE: 20210804
